FAERS Safety Report 6844057-7 (Version None)
Quarter: 2010Q2

REPORT INFORMATION
  Report Type: 
  Country: None (occurrence: None)
  Receive Date: 20100629
  Receipt Date: 20100318
  Transmission Date: 20101027
  Serious: Yes (Other)
  Sender: FDA-Public Use
  Company Number: US-WYE-H11771209

PATIENT
  Age: 53 Year
  Sex: Female
  Weight: 79.45 kg

DRUGS (7)
  1. PRISTIQ [Suspect]
     Indication: DEPRESSION
     Dosage: 50 MG 1X PER 1 DAY, ORAL
     Route: 048
     Dates: start: 20091001, end: 20100301
  2. CLONAZEPAM [Concomitant]
  3. TOPAMAX [Concomitant]
  4. SINGULAIR [Concomitant]
  5. GEODON [Concomitant]
  6. SYNTHROID [Concomitant]
  7. BACLOFEN [Concomitant]

REACTIONS (9)
  - BLOOD TRIGLYCERIDES INCREASED [None]
  - DIZZINESS [None]
  - DRUG WITHDRAWAL SYNDROME [None]
  - HYPERSENSITIVITY [None]
  - INSOMNIA [None]
  - NAUSEA [None]
  - OSTEOPENIA [None]
  - TINNITUS [None]
  - WEIGHT INCREASED [None]
